FAERS Safety Report 6829521-9 (Version None)
Quarter: 2010Q3

REPORT INFORMATION
  Report Type: 
  Country: None (occurrence: None)
  Receive Date: 20100709
  Receipt Date: 20080328
  Transmission Date: 20110219
  Serious: No
  Sender: FDA-Public Use
  Company Number: US-PFIZER INC-2007017088

PATIENT
  Sex: Female
  Weight: 81.65 kg

DRUGS (3)
  1. CHANTIX [Suspect]
     Indication: SMOKING CESSATION THERAPY
     Dates: start: 20070226
  2. BETASERON [Concomitant]
     Indication: MULTIPLE SCLEROSIS
  3. ALL OTHER THERAPEUTIC PRODUCTS [Concomitant]
     Indication: CONTRACEPTION

REACTIONS (4)
  - ABNORMAL DREAMS [None]
  - AMENORRHOEA [None]
  - FACTITIOUS DISORDER [None]
  - NAUSEA [None]
